FAERS Safety Report 8925262 (Version 1)
Quarter: 2012Q4

REPORT INFORMATION
  Report Type: 
  Country: US (occurrence: US)
  Receive Date: 20121126
  Receipt Date: 20121126
  Transmission Date: 20130627
  Serious: No
  Sender: FDA-Public Use
  Company Number: US-VERTEX PHARMACEUTICAL INC.-2012-024815

PATIENT
  Age: 32 Year
  Sex: Female
  Weight: 71 kg

DRUGS (4)
  1. VX-950 (TELAPREVIR) [Suspect]
     Indication: HEPATITIS C
     Dosage: 2 DF, tid
     Route: 048
     Dates: start: 20121115
  2. RIBASPHERE [Concomitant]
     Indication: HEPATITIS C
     Dosage: 3am/ 2pm
     Dates: start: 20121115
  3. PEGASYS [Concomitant]
     Indication: HEPATITIS C
     Dosage: 180 ?g, qw
     Route: 058
     Dates: start: 20121115
  4. ZOFRAN                             /00955301/ [Concomitant]
     Dosage: 8 mg, prn
     Route: 048

REACTIONS (4)
  - Influenza like illness [Unknown]
  - Chills [Unknown]
  - Headache [Unknown]
  - Diarrhoea [None]
